FAERS Safety Report 5667661-0 (Version None)
Quarter: 2008Q1

REPORT INFORMATION
  Report Type: 
  Country: None (occurrence: None)
  Receive Date: 20080315
  Receipt Date: 20080225
  Transmission Date: 20080703
  Serious: Yes (Hospitalization)
  Sender: FDA-Public Use
  Company Number: US-ABBOTT-08P-163-0435938-00

PATIENT
  Sex: Female
  Weight: 122.7 kg

DRUGS (2)
  1. HUMIRA [Suspect]
     Indication: RHEUMATOID ARTHRITIS
     Route: 058
     Dates: start: 20070101, end: 20070901
  2. HUMIRA [Suspect]
     Indication: PSORIATIC ARTHROPATHY
     Route: 058
     Dates: start: 20070901

REACTIONS (5)
  - BRONCHITIS [None]
  - DRUG INEFFECTIVE [None]
  - FURUNCLE [None]
  - LOCALISED INFECTION [None]
  - RHEUMATOID ARTHRITIS [None]
